FAERS Safety Report 8333551 (Version 5)
Quarter: 2014Q1

REPORT INFORMATION
  Report Type: Report from Study
  Country: FR (occurrence: FR)
  Receive Date: 20120112
  Receipt Date: 20140304
  Transmission Date: 20141002
  Serious: Yes (Hospitalization)
  Sender: FDA-Public Use
  Company Number: FR-MPIJNJ-2011-05653

PATIENT
  Sex: 0

DRUGS (13)
  1. VELCADE [Suspect]
     Indication: PLASMA CELL MYELOMA
     Dosage: 2.4 MG, UNK
     Route: 042
     Dates: start: 20111104, end: 20120207
  2. CYCLOPHOSPHAMIDE [Suspect]
     Indication: PLASMA CELL MYELOMA
     Dosage: 140 MG, UNK
     Route: 042
     Dates: start: 20111104, end: 20111115
  3. DEXAMETHASONE [Suspect]
     Indication: PLASMA CELL MYELOMA
     Dosage: 20 MG, UNK
     Route: 048
     Dates: start: 20111104, end: 20111112
  4. CALCIPARIN [Concomitant]
     Indication: THROMBOSIS PROPHYLAXIS
     Dosage: 0.2 ML, UNK
     Route: 058
     Dates: start: 20111031, end: 20111110
  5. INIPOMP                            /01263201/ [Concomitant]
     Indication: PROPHYLAXIS
     Dosage: 40 MG, UNK
     Route: 048
     Dates: start: 20111031
  6. IMOVANE [Concomitant]
     Indication: SLEEP DISORDER
     Dosage: 3.75 MG, UNK
     Route: 048
     Dates: start: 20111101
  7. BISOPROLOL [Concomitant]
     Indication: HYPERTENSION
     Dosage: 1.5 MG, BID
  8. PERINDOPRIL [Concomitant]
     Indication: HYPERTENSION
     Dosage: 1 DF, UNK
  9. PLAVIX                             /01220701/ [Concomitant]
     Indication: CARDIAC DISORDER
     Dosage: 1 DF, UNK
  10. LERCAN [Concomitant]
     Indication: HYPERTENSION
     Dosage: 1 MG, UNK
  11. EZETROL [Concomitant]
     Dosage: 10 MG, UNK
  12. KLIPAL                             /01259001/ [Concomitant]
     Dosage: 600 MG, UNK
  13. ART [Concomitant]
     Dosage: 50 MG, UNK

REACTIONS (2)
  - Lung disorder [Recovered/Resolved]
  - Pyrexia [Recovered/Resolved]
